FAERS Safety Report 22225184 (Version 1)
Quarter: 2023Q2

REPORT INFORMATION
  Report Type: Spontaneous
  Country: FR (occurrence: FR)
  Receive Date: 20230418
  Receipt Date: 20230418
  Transmission Date: 20230722
  Serious: Yes (Other)
  Sender: FDA-Public Use
  Company Number: FR-002147023-NVSC2023FR086916

PATIENT
  Age: 58 Year
  Sex: Female

DRUGS (2)
  1. FULVESTRANT [Suspect]
     Active Substance: FULVESTRANT
     Indication: Skin cancer
     Dosage: UNK
     Route: 065
     Dates: start: 202006
  2. PALBOCICLIB [Suspect]
     Active Substance: PALBOCICLIB
     Indication: Skin cancer
     Dosage: UNK
     Route: 065
     Dates: start: 202006

REACTIONS (3)
  - Skin cancer [Unknown]
  - Malignant neoplasm progression [Unknown]
  - Product use in unapproved indication [Unknown]
